FAERS Safety Report 6653056-X (Version None)
Quarter: 2010Q1

REPORT INFORMATION
  Report Type: 
  Country: None (occurrence: None)
  Receive Date: 20100326
  Receipt Date: 20100316
  Transmission Date: 20100710
  Serious: Yes (Other)
  Sender: FDA-Public Use
  Company Number: PHHY2009JP44459

PATIENT
  Sex: Male

DRUGS (3)
  1. ZOMETA [Suspect]
     Indication: METASTASES TO BONE
     Dosage: 4 MG, UNK
     Route: 042
     Dates: start: 20080101
  2. TS 1 [Concomitant]
     Dosage: UNK
     Route: 048
  3. SEISHOKU [Concomitant]
     Dosage: UNK
     Route: 041
     Dates: start: 20090827

REACTIONS (7)
  - ALTERED STATE OF CONSCIOUSNESS [None]
  - APHASIA [None]
  - DISORIENTATION [None]
  - DIZZINESS [None]
  - GAIT DISTURBANCE [None]
  - MUSCULAR WEAKNESS [None]
  - TRANSIENT ISCHAEMIC ATTACK [None]
